FAERS Safety Report 6354660-9 (Version None)
Quarter: 2009Q3

REPORT INFORMATION
  Report Type: 
  Country: None (occurrence: None)
  Receive Date: 20090909
  Receipt Date: 20090901
  Transmission Date: 20100115
  Serious: Yes (Other)
  Sender: FDA-Public Use
  Company Number: B0590499A

PATIENT
  Sex: 0

DRUGS (10)
  1. LAMIVUDINE [Suspect]
     Indication: ANTIRETROVIRAL THERAPY
  2. ACYCLOVIR [Suspect]
     Indication: DRUG USE FOR UNKNOWN INDICATION
  3. EFAVIRENZ [Suspect]
     Indication: ANTIRETROVIRAL THERAPY
  4. STAVUDINE [Suspect]
     Indication: DRUG USE FOR UNKNOWN INDICATION
  5. CHAMOMILE (FORMULATION UNKNOWN) (CHAMOMILE) [Suspect]
     Indication: DRUG USE FOR UNKNOWN INDICATION
  6. TARAXACUM (FORMULATION UNKNOWN) [Suspect]
     Indication: DRUG USE FOR UNKNOWN INDICATION
  7. SILYMARIN (FORMULATION UNKNOWN) (SILYMARIN) [Suspect]
     Indication: DRUG USE FOR UNKNOWN INDICATION
  8. MULTIVITAMIN [Suspect]
     Indication: DRUG USE FOR UNKNOWN INDICATION
  9. TRYPTOPHAN (FORMULATION UNKNOWN) (TRYPTOPHAN) [Suspect]
     Indication: DRUG USE FOR UNKNOWN INDICATION
  10. VITAMIN E [Suspect]
     Indication: DRUG USE FOR UNKNOWN INDICATION

REACTIONS (8)
  - CHILLS [None]
  - DRUG INTERACTION [None]
  - HALLUCINATION [None]
  - MUSCLE SPASMS [None]
  - NIGHTMARE [None]
  - PYREXIA [None]
  - RASH [None]
  - URTICARIA [None]
